FAERS Safety Report 11360340 (Version 1)
Quarter: 2015Q3

REPORT INFORMATION
  Report Type: Report from Study
  Country: US (occurrence: US)
  Receive Date: 20150810
  Receipt Date: 20150810
  Transmission Date: 20151125
  Serious: No
  Sender: FDA-Public Use
  Company Number: PHEH2014US023492

PATIENT
  Sex: Female

DRUGS (4)
  1. EXTAVIA [Suspect]
     Active Substance: INTERFERON BETA-1B
     Indication: MULTIPLE SCLEROSIS
     Dosage: 0.062 MG (0.25 ML), QOD (WEEK 01 T 02)
     Route: 058
  2. EXTAVIA [Suspect]
     Active Substance: INTERFERON BETA-1B
     Dosage: 0.125 MG (0.5 ML), QOD (WEEK 03 TO 04)
     Route: 058
  3. EXTAVIA [Suspect]
     Active Substance: INTERFERON BETA-1B
     Dosage: 0.187 MG (0.75 ML), QOD (WEEK 05 TO 06)
     Route: 058
  4. EXTAVIA [Suspect]
     Active Substance: INTERFERON BETA-1B
     Dosage: 0.25 MG (01 ML), QOD (WEEK 07 PLUS)
     Route: 058

REACTIONS (6)
  - Pain [Recovered/Resolved]
  - Malaise [Unknown]
  - Drug titration error [Recovered/Resolved]
  - Nasopharyngitis [Unknown]
  - Muscular weakness [Recovered/Resolved]
  - Pyrexia [Recovered/Resolved]
